FAERS Safety Report 25579112 (Version 1)
Quarter: 2025Q3

REPORT INFORMATION
  Report Type: Spontaneous
  Country: US (occurrence: None)
  Receive Date: 20250718
  Receipt Date: 20250718
  Transmission Date: 20251021
  Serious: No
  Sender: INCYTE
  Company Number: US-INCYTE CORPORATION-2025IN007690

PATIENT
  Age: 35 Year

DRUGS (1)
  1. JAKAFI [Suspect]
     Active Substance: RUXOLITINIB
     Indication: Antiphospholipid syndrome
     Dosage: 10 MILLIGRAM, BID

REACTIONS (2)
  - Fatigue [Not Recovered/Not Resolved]
  - Off label use [Unknown]
